FAERS Safety Report 5337238-5 (Version None)
Quarter: 2007Q2

REPORT INFORMATION
  Report Type: 
  Country: None (occurrence: None)
  Receive Date: 20070529
  Receipt Date: 20070525
  Transmission Date: 20071010
  Serious: Yes (Death, Hospitalization)
  Sender: FDA-Public Use
  Company Number: A0653059A

PATIENT
  Age: 73 Year
  Sex: Female
  Weight: 87 kg

DRUGS (7)
  1. AVANDIA [Suspect]
     Dosage: 4MG PER DAY
     Route: 048
     Dates: start: 20070101, end: 20070502
  2. ASPIRIN [Concomitant]
     Dates: end: 20070502
  3. ATORVASTATIN CALCIUM [Concomitant]
     Dates: start: 20060501, end: 20070502
  4. FUROSEMIDE [Concomitant]
     Dates: start: 20040101, end: 20070502
  5. ENALAPRIL MALEATE [Concomitant]
     Dates: start: 20070101, end: 20070502
  6. DAFLON [Concomitant]
     Dates: start: 20040101, end: 20070502
  7. OLMESARTAN MEDOXOMIL [Concomitant]
     Dates: start: 20070101, end: 20070502

REACTIONS (1)
  - MYOCARDIAL INFARCTION [None]
